FAERS Safety Report 24564427 (Version 3)
Quarter: 2024Q4

REPORT INFORMATION
  Report Type: Spontaneous
  Country: CL (occurrence: CL)
  Receive Date: 20241030
  Receipt Date: 20241114
  Transmission Date: 20250114
  Serious: Yes (Death, Hospitalization, Other)
  Sender: TEVA
  Company Number: CL-TEVA-VS-3257655

PATIENT
  Age: 76 Year
  Sex: Male
  Weight: 47 kg

DRUGS (1)
  1. PHENYTOIN [Suspect]
     Active Substance: PHENYTOIN
     Indication: Generalised onset non-motor seizure
     Dosage: 100 MG, 1 DOSAGE FORM IN THE MORNINGS AND TWO DOSAGE FORM AT NIGHTS
     Route: 048
     Dates: start: 20130725

REACTIONS (7)
  - Toxicity to various agents [Fatal]
  - Speech disorder [Unknown]
  - Dyskinesia [Unknown]
  - Gait inability [Unknown]
  - Decreased appetite [Unknown]
  - Blood pressure increased [Unknown]
  - Oxygen saturation decreased [Unknown]

NARRATIVE: CASE EVENT DATE: 20240801
